FAERS Safety Report 4781856-X (Version None)
Quarter: 2005Q3

REPORT INFORMATION
  Report Type: 
  Country: None (occurrence: None)
  Receive Date: 20050927
  Receipt Date: 20050915
  Transmission Date: 20060218
  Serious: Yes (Hospitalization)
  Sender: FDA-Public Use
  Company Number: 2005119769

PATIENT
  Age: 71 Year
  Sex: Female
  Weight: 90.2658 kg

DRUGS (9)
  1. ZYVOX [Suspect]
     Indication: PNEUMONIA
     Dosage: 1200 MG (600 MG, 2 IN 1 D), ORAL
     Route: 048
     Dates: start: 20050811, end: 20050822
  2. TOPROL (METOPROLOL) [Concomitant]
  3. DILTIAZEM [Concomitant]
  4. FUROSEMIDE [Concomitant]
  5. KLOR-CON [Concomitant]
  6. SPIRIVA [Concomitant]
  7. ADVAIR (FLUTICASONE PROPIONAE, SALMETEROL XINAFOATE) [Concomitant]
  8. PAROXETINE HCL [Concomitant]
  9. OXYGEN (OXYGEN) [Concomitant]

REACTIONS (2)
  - EPISTAXIS [None]
  - INTERNATIONAL NORMALISED RATIO INCREASED [None]
